FAERS Safety Report 7531595-7 (Version None)
Quarter: 2011Q2

REPORT INFORMATION
  Report Type: 
  Country: None (occurrence: None)
  Receive Date: 20110608
  Receipt Date: 20110525
  Transmission Date: 20111010
  Serious: Yes (Death)
  Sender: FDA-Public Use
  Company Number: DE-CELGENEUS-062-20785-11053302

PATIENT
  Age: 65 Year
  Sex: Male

DRUGS (1)
  1. THALIDOMIDE [Suspect]
     Route: 048
     Dates: end: 20100820

REACTIONS (1)
  - DISEASE PROGRESSION [None]
